FAERS Safety Report 4819787-9 (Version None)
Quarter: 2005Q4

REPORT INFORMATION
  Report Type: 
  Country: None (occurrence: None)
  Receive Date: 20051102
  Receipt Date: 20051026
  Transmission Date: 20060501
  Serious: Yes (Other)
  Sender: FDA-Public Use
  Company Number: 2005143183

PATIENT
  Age: 44 Year
  Sex: Female
  Weight: 51.7101 kg

DRUGS (4)
  1. ZYRTEC [Suspect]
     Indication: SKIN LESION
     Dosage: (1 IN 1 D), ORAL
     Route: 048
     Dates: start: 20051010, end: 20051010
  2. ZITHROMAX [Suspect]
     Indication: ILL-DEFINED DISORDER
  3. BENADRYL [Suspect]
     Indication: URTICARIA
     Dosage: (50 MG, EVERY 5-6 HOURS), ORAL
     Route: 048
     Dates: start: 20051001
  4. SYNTHROID [Concomitant]

REACTIONS (6)
  - HYPERSENSITIVITY [None]
  - PARAESTHESIA [None]
  - SKIN LESION [None]
  - SOMNOLENCE [None]
  - THROAT TIGHTNESS [None]
  - UNEVALUABLE EVENT [None]
